FAERS Safety Report 6810640-8 (Version None)
Quarter: 2010Q2

REPORT INFORMATION
  Report Type: 
  Country: None (occurrence: None)
  Receive Date: 20100629
  Receipt Date: 20100629
  Transmission Date: 20101027
  Serious: Yes (Other)
  Sender: FDA-Public Use
  Company Number: None

PATIENT
  Age: 40 Year
  Sex: Female
  Weight: 56.6996 kg

DRUGS (1)
  1. FEXOFENADINE [Suspect]
     Indication: MULTIPLE ALLERGIES
     Dosage: 60-120 MG 2 X DAILY PO
     Route: 048
     Dates: start: 20100301, end: 20100624

REACTIONS (3)
  - GASTROINTESTINAL DISORDER [None]
  - PRODUCT ODOUR ABNORMAL [None]
  - PRODUCT SUBSTITUTION ISSUE [None]
